FAERS Safety Report 9149649 (Version 1)
Quarter: 2013Q1

REPORT INFORMATION
  Report Type: Spontaneous
  Country: US (occurrence: US)
  Receive Date: 20130308
  Receipt Date: 20130308
  Transmission Date: 20140127
  Serious: Yes (Hospitalization, Other)
  Sender: FDA-Public Use
  Company Number: US-ABBOTT-13P-163-1059684-00

PATIENT
  Age: 18 None
  Sex: Female

DRUGS (5)
  1. HUMIRA [Suspect]
     Indication: CROHN^S DISEASE
     Dates: start: 201204, end: 201210
  2. HUMIRA [Suspect]
     Dates: start: 20130304
  3. UNKNOWN NASAL SPRAY [Concomitant]
     Indication: PRODUCT USED FOR UNKNOWN INDICATION
  4. AZATHIOPRINE [Concomitant]
     Indication: CROHN^S DISEASE
     Dates: start: 201204
  5. STEROIDS [Concomitant]
     Indication: CROHN^S DISEASE

REACTIONS (15)
  - Abortion spontaneous [Unknown]
  - Crohn^s disease [Unknown]
  - Injection site urticaria [Recovered/Resolved]
  - Off label use [Not Recovered/Not Resolved]
  - Wrong technique in drug usage process [Not Recovered/Not Resolved]
  - Incorrect dose administered [Not Recovered/Not Resolved]
  - Injection site pain [Recovered/Resolved]
  - Product quality issue [Not Recovered/Not Resolved]
  - Injection site extravasation [Not Recovered/Not Resolved]
  - Injection site inflammation [Recovered/Resolved]
  - Injection site erythema [Recovered/Resolved]
  - Vomiting [Unknown]
  - Nausea [Unknown]
  - Headache [Unknown]
  - Sinusitis [Recovered/Resolved]
